FAERS Safety Report 4481959-3 (Version None)
Quarter: 2004Q4

REPORT INFORMATION
  Report Type: 
  Country: None (occurrence: None)
  Receive Date: 20041020
  Receipt Date: 20041020
  Transmission Date: 20050328
  Serious: Yes (Other)
  Sender: FDA-Public Use
  Company Number: None

PATIENT
  Age: 47 Year
  Sex: Male
  Weight: 97.8 kg

DRUGS (1)
  1. VISIPAQUE 270 [Suspect]

REACTIONS (2)
  - PRURITUS [None]
  - URTICARIA [None]
